FAERS Safety Report 12859316 (Version 1)
Quarter: 2016Q4

REPORT INFORMATION
  Report Type: Spontaneous
  Country: GR (occurrence: GR)
  Receive Date: 20161018
  Receipt Date: 20161018
  Transmission Date: 20170207
  Serious: Yes (Other)
  Sender: FDA-Public Use
  Company Number: PHHY2016GR140525

PATIENT
  Age: 77 Year
  Sex: Female

DRUGS (2)
  1. EXELON PATCH [Suspect]
     Active Substance: RIVASTIGMINE
     Indication: PRODUCT USED FOR UNKNOWN INDICATION
     Dosage: 9.5 MG, QDPATCH 10 (CM2)
     Route: 062
  2. EXELON PATCH [Suspect]
     Active Substance: RIVASTIGMINE
     Dosage: 4.6 MG, QD PATCH 7.5 (CM2)
     Route: 062

REACTIONS (4)
  - Abnormal behaviour [Recovering/Resolving]
  - Anxiety [Not Recovered/Not Resolved]
  - Drug administration error [Recovering/Resolving]
  - Delirium [Recovering/Resolving]
